FAERS Safety Report 7398805-0 (Version None)
Quarter: 2011Q2

REPORT INFORMATION
  Report Type: 
  Country: None (occurrence: None)
  Receive Date: 20110404
  Receipt Date: 20110404
  Transmission Date: 20111010
  Serious: No
  Sender: FDA-Public Use
  Company Number: None

PATIENT
  Sex: Male
  Weight: 65 kg

DRUGS (5)
  1. VINCRISTINE SULFATE [Suspect]
     Dosage: 2 MG
  2. CYCLOPHOSPHAMIDE [Suspect]
     Dosage: 1395 MG
  3. RITUXIMAB (MOAB C2B8 ANTI CD20, CHIMERIC, [Suspect]
  4. DOXIL [Suspect]
     Dosage: 74 MG
  5. PREDNISONE [Suspect]
     Dosage: 500 MG

REACTIONS (1)
  - LEUKOPENIA [None]
